FAERS Safety Report 5150307-8 (Version None)
Quarter: 2006Q4

REPORT INFORMATION
  Report Type: 
  Country: None (occurrence: None)
  Receive Date: 20061110
  Receipt Date: 20061110
  Transmission Date: 20070319
  Serious: No
  Sender: FDA-Public Use
  Company Number: None

PATIENT
  Age: 16 Year
  Sex: Male
  Weight: 68.0396 kg

DRUGS (1)
  1. ACETAMINOPHEN [Suspect]
     Dosage: 2 CAPLETS    PO
     Route: 048

REACTIONS (1)
  - TONGUE HAEMORRHAGE [None]
